FAERS Safety Report 18607615 (Version 1)
Quarter: 2020Q4

REPORT INFORMATION
  Report Type: Spontaneous
  Country: GB (occurrence: GB)
  Receive Date: 20201211
  Receipt Date: 20201211
  Transmission Date: 20210114
  Serious: Yes (Other)
  Sender: FDA-Public Use
  Company Number: GB-JAZZ-2020-GB-016584

PATIENT
  Age: 67 Year
  Sex: Male

DRUGS (2)
  1. VYXEOS [Suspect]
     Active Substance: CYTARABINE\DAUNORUBICIN
     Indication: ACUTE MYELOID LEUKAEMIA
     Dosage: FIRST INDUCTION
  2. VYXEOS [Suspect]
     Active Substance: CYTARABINE\DAUNORUBICIN
     Dosage: SECOND CYCLE

REACTIONS (5)
  - Neutropenic sepsis [Unknown]
  - Acute kidney injury [Recovered/Resolved]
  - Skin ulcer [Unknown]
  - Condition aggravated [Unknown]
  - Cellulitis [Unknown]
